FAERS Safety Report 6293584-2 (Version None)
Quarter: 2009Q3

REPORT INFORMATION
  Report Type: 
  Country: None (occurrence: None)
  Receive Date: 20090803
  Receipt Date: 20090728
  Transmission Date: 20100115
  Serious: Yes (Other)
  Sender: FDA-Public Use
  Company Number: CA-ALLERGAN-0910555US

PATIENT
  Sex: Female

DRUGS (1)
  1. BOTOX [Suspect]
     Indication: DRUG USE FOR UNKNOWN INDICATION
     Dosage: 500 UNITS, UNK
     Route: 030

REACTIONS (1)
  - MUSCULAR WEAKNESS [None]
